FAERS Safety Report 19707366 (Version 1)
Quarter: 2021Q3

REPORT INFORMATION
  Report Type: Spontaneous
  Country: US (occurrence: US)
  Receive Date: 20210816
  Receipt Date: 20210816
  Transmission Date: 20211014
  Serious: No
  Sender: FDA-Public Use
  Company Number: None

PATIENT
  Sex: Male

DRUGS (3)
  1. LISINOPRIL. [Concomitant]
     Active Substance: LISINOPRIL
  2. DEXAMETHASONE. [Concomitant]
     Active Substance: DEXAMETHASONE
  3. CYCLOPHOSPHAMIDE 50MG CAPSULES [Suspect]
     Active Substance: CYCLOPHOSPHAMIDE
     Indication: LYMPHOMA
     Route: 048
     Dates: start: 20210611

REACTIONS (2)
  - Haemoglobin decreased [None]
  - Therapy cessation [None]
